FAERS Safety Report 10469166 (Version 1)
Quarter: 2014Q3

REPORT INFORMATION
  Report Type: Spontaneous
  Country: US (occurrence: None)
  Receive Date: 20140829
  Receipt Date: 20140829
  Transmission Date: 20150326
  Serious: Yes (Other)
  Sender: FDA-Public Use
  Company Number: PHEH2013US014259

PATIENT
  Sex: Female

DRUGS (7)
  1. FISH OIL (FISH OIL) [Concomitant]
     Active Substance: FISH OIL
  2. PANTOPRAZOLE (PANTOPRAZOLE) [Concomitant]
     Active Substance: PANTOPRAZOLE SODIUM
  3. FLUOXETINE HYDROCHLORIDE (FLUOXETINE HYDROCHLORIDE) [Concomitant]
     Active Substance: FLUOXETINE HYDROCHLORIDE
  4. VITAMINS NOS (VITAMINS NOS) [Concomitant]
     Active Substance: VITAMINS
  5. METOPROLOL (METOPROLOL) [Concomitant]
     Active Substance: METOPROLOL
  6. EXFORGE [Suspect]
     Active Substance: AMLODIPINE BESYLATE\VALSARTAN
     Dosage: 1 DF (160 MG VALS AND 10 MG AMLO), PER DAY
     Dates: end: 20130625
  7. SIMVASTATIN (SIMVASTATIN) [Concomitant]
     Active Substance: SIMVASTATIN

REACTIONS (1)
  - Hypertension [None]
